FAERS Safety Report 13415241 (Version 1)
Quarter: 2017Q2

REPORT INFORMATION
  Report Type: Spontaneous
  Country: US (occurrence: US)
  Receive Date: 20170407
  Receipt Date: 20170407
  Transmission Date: 20170830
  Serious: Yes (Other)
  Sender: FDA-Public Use
  Company Number: None

PATIENT
  Age: 49 Year
  Sex: Male
  Weight: 87.75 kg

DRUGS (3)
  1. ASPIRIN. [Concomitant]
     Active Substance: ASPIRIN
  2. AMOXICILLIN. [Suspect]
     Active Substance: AMOXICILLIN
     Indication: SINUSITIS
     Dosage: ?          QUANTITY:20 TABLET(S);?
     Route: 048
  3. EFFIENT [Concomitant]
     Active Substance: PRASUGREL HYDROCHLORIDE

REACTIONS (11)
  - Pruritus generalised [None]
  - Apparent death [None]
  - Nausea [None]
  - Dizziness [None]
  - Abasia [None]
  - Lethargy [None]
  - Headache [None]
  - Diarrhoea [None]
  - Rash generalised [None]
  - Muscle fatigue [None]
  - Decreased appetite [None]

NARRATIVE: CASE EVENT DATE: 20170321
